FAERS Safety Report 8012948-X (Version None)
Quarter: 2011Q4

REPORT INFORMATION
  Report Type: 
  Country: None (occurrence: None)
  Receive Date: 20111229
  Receipt Date: 20111219
  Transmission Date: 20120403
  Serious: Yes (Hospitalization, Other)
  Sender: FDA-Public Use
  Company Number: US-JNJFOC-20111208210

PATIENT
  Sex: Female
  Weight: 90.72 kg

DRUGS (2)
  1. REMICADE [Suspect]
     Indication: RHEUMATOID ARTHRITIS
     Route: 042
     Dates: start: 20110908, end: 20111101
  2. REMICADE [Suspect]
     Route: 042

REACTIONS (3)
  - DEHYDRATION [None]
  - STAPHYLOCOCCAL INFECTION [None]
  - TENDON DISORDER [None]
